FAERS Safety Report 4663810-1 (Version None)
Quarter: 2005Q2

REPORT INFORMATION
  Report Type: 
  Country: None (occurrence: None)
  Receive Date: 20050511
  Receipt Date: 20050401
  Transmission Date: 20051028
  Serious: Yes (Other)
  Sender: FDA-Public Use
  Company Number: 400334

PATIENT
  Age: 45 Year
  Sex: Male
  Weight: 84.4 kg

DRUGS (2)
  1. PEGASYS [Suspect]
     Dosage: 180 MCG, 1 PER WEEK, SUBCUTANEOUS
     Route: 058
     Dates: start: 20041124, end: 20050111
  2. COPEGUS [Suspect]
     Dosage: 600 MG, 2 PER DAY, ORAL
     Route: 048
     Dates: start: 20041124, end: 20050111

REACTIONS (2)
  - LEUKOPENIA [None]
  - NEUTROPENIA [None]
